FAERS Safety Report 21983384 (Version 1)
Quarter: 2023Q1

REPORT INFORMATION
  Report Type: Spontaneous
  Country: US (occurrence: US)
  Receive Date: 20230213
  Receipt Date: 20230213
  Transmission Date: 20230418
  Serious: Yes (Death, Other)
  Sender: FDA-Public Use
  Company Number: US-OTSUKA-2022_009258

PATIENT

DRUGS (11)
  1. BUSULFAN [Suspect]
     Active Substance: BUSULFAN
     Indication: Myeloid leukaemia
     Dosage: 0.8 MG/KG/DOSE EVERY 6 HOURS
     Route: 065
  2. CLOFARABINE [Suspect]
     Active Substance: CLOFARABINE
     Indication: Myeloid leukaemia
     Dosage: 40 MG/M2, QD
     Route: 065
  3. CYTARABINE [Suspect]
     Active Substance: CYTARABINE
     Indication: Myeloid leukaemia
     Dosage: 1 G/M2, QD (ON DAYS -9 AND -8)
     Route: 065
  4. CYCLOPHOSPHAMIDE [Suspect]
     Active Substance: CYCLOPHOSPHAMIDE
     Indication: Myeloid leukaemia
     Dosage: 15 MG/KG, QD (DAY-5)
     Route: 065
  5. CYCLOPHOSPHAMIDE [Suspect]
     Active Substance: CYCLOPHOSPHAMIDE
     Indication: Prophylaxis against graft versus host disease
     Dosage: 50 MG/KG, QD (DAY 4)
     Route: 065
  6. ANTI-THYMOCYTE GLOBULIN (RABBIT) NOS [Suspect]
     Active Substance: LAPINE T-LYMPHOCYTE IMMUNE GLOBULIN
     Indication: Myeloid leukaemia
     Dosage: 1 MG/KG, QD (DAY -4)
     Route: 065
  7. ANTI-THYMOCYTE GLOBULIN (RABBIT) NOS [Suspect]
     Active Substance: LAPINE T-LYMPHOCYTE IMMUNE GLOBULIN
     Dosage: 3 MG/KG, QD (DAY-3,-2, AND -1)
     Route: 065
  8. PLERIXAFOR [Suspect]
     Active Substance: PLERIXAFOR
     Indication: Graft versus host disease
     Dosage: 0.24 MG/KG/DAY (ON DAYS -7 AND -6)
     Route: 065
  9. PLERIXAFOR [Suspect]
     Active Substance: PLERIXAFOR
     Indication: Leukaemia
  10. TACROLIMUS [Suspect]
     Active Substance: TACROLIMUS
     Indication: Prophylaxis against graft versus host disease
     Dosage: UNK (DAY 11)
     Route: 065
  11. MYCOPHENOLATE MOFETIL HYDROCHLORIDE [Suspect]
     Active Substance: MYCOPHENOLATE MOFETIL HYDROCHLORIDE
     Indication: Prophylaxis against graft versus host disease
     Dosage: UNK (DAY 11)
     Route: 065

REACTIONS (2)
  - Multiple organ dysfunction syndrome [Fatal]
  - Venoocclusive disease [Fatal]
